FAERS Safety Report 12852302 (Version 3)
Quarter: 2016Q4

REPORT INFORMATION
  Report Type: Report from Study
  Country: ES (occurrence: ES)
  Receive Date: 20161017
  Receipt Date: 20161209
  Transmission Date: 20170207
  Serious: Yes (Death, Hospitalization)
  Sender: FDA-Public Use
  Company Number: ES-B.I. PHARMACEUTICALS,INC./RIDGEFIELD-2015-BI-73045II

PATIENT
  Age: 32 Year
  Sex: Female
  Weight: 63 kg

DRUGS (3)
  1. PLACEBO [Suspect]
     Active Substance: UNSPECIFIED INGREDIENT
     Indication: CERVIX CARCINOMA
     Route: 048
     Dates: start: 20151029, end: 20160201
  2. CARBOPLATIN. [Suspect]
     Active Substance: CARBOPLATIN
     Indication: CERVIX CARCINOMA
     Route: 042
     Dates: start: 20151028, end: 20160127
  3. PACLITAXEL. [Suspect]
     Active Substance: PACLITAXEL
     Indication: CERVIX CARCINOMA
     Route: 042
     Dates: start: 20151028, end: 20160127

REACTIONS (4)
  - Vaginal haemorrhage [Fatal]
  - Female genital tract fistula [Unknown]
  - Embolism venous [Unknown]
  - Anaemia [Recovered/Resolved]

NARRATIVE: CASE EVENT DATE: 20151226
